FAERS Safety Report 7781460-5 (Version None)
Quarter: 2011Q3

REPORT INFORMATION
  Report Type: 
  Country: None (occurrence: None)
  Receive Date: 20110923
  Receipt Date: 20110908
  Transmission Date: 20111222
  Serious: Yes (Other)
  Sender: FDA-Public Use
  Company Number: AUR-APL-2010-02978

PATIENT
  Age: 58 Year
  Sex: Female
  Weight: 117 kg

DRUGS (5)
  1. ALLOPURINOL [Concomitant]
  2. DICLOFENAC SODIUM [Concomitant]
  3. LANSOPRAZOLE [Concomitant]
  4. HYDROXYUREA [Concomitant]
  5. TERBINAFINE HCL [Suspect]
     Indication: FUNGAL INFECTION
     Dosage: 250 MG (250 MG,1 IN 1 D),ORAL
     Route: 048
     Dates: start: 20100906, end: 20100920

REACTIONS (3)
  - CHROMATURIA [None]
  - JAUNDICE [None]
  - NAUSEA [None]
